FAERS Safety Report 4860378-1 (Version None)
Quarter: 2005Q4

REPORT INFORMATION
  Report Type: 
  Country: None (occurrence: None)
  Receive Date: 20051215
  Receipt Date: 20051128
  Transmission Date: 20060501
  Serious: Yes (Hospitalization)
  Sender: FDA-Public Use
  Company Number: 219686

PATIENT
  Sex: Female

DRUGS (3)
  1. AVASTIN [Suspect]
     Indication: PANCREATIC CARCINOMA
     Dosage: 10 MG/KG, DAYS 1 + 15,
     Dates: start: 20050908, end: 20051020
  2. OXALIPLATIN (OXALIPLATIN) [Suspect]
     Indication: PANCREATIC CARCINOMA
     Dosage: 320 MG
     Dates: start: 20050908, end: 20051020
  3. GEMCITABINE (GEMCITABINE HYDROCHLORIDE) [Suspect]
     Indication: PANCREATIC CARCINOMA
     Dosage: 3200 MG, DAYS 1 + 15
     Dates: start: 20050908, end: 20051020

REACTIONS (6)
  - ANAEMIA [None]
  - CATHETER RELATED COMPLICATION [None]
  - DIARRHOEA [None]
  - HYPOCALCAEMIA [None]
  - PERIPHERAL SENSORY NEUROPATHY [None]
  - WOUND COMPLICATION [None]
